FAERS Safety Report 4864468-9 (Version None)
Quarter: 2005Q4

REPORT INFORMATION
  Report Type: 
  Country: None (occurrence: None)
  Receive Date: 20051222
  Receipt Date: 20051214
  Transmission Date: 20060501
  Serious: Yes (Hospitalization)
  Sender: FDA-Public Use
  Company Number: JP-JNJFOC-20051202953

PATIENT
  Age: 63 Year
  Sex: Male

DRUGS (6)
  1. OFLOCET [Suspect]
     Indication: OSTEITIS
     Route: 048
     Dates: start: 20051018, end: 20051103
  2. OFLOCET [Suspect]
     Route: 048
     Dates: start: 20051018, end: 20051103
  3. OFLOCET [Suspect]
     Route: 048
     Dates: start: 20051018, end: 20051103
  4. RIFAMPICIN [Suspect]
     Indication: OSTEITIS
     Dates: start: 20051018, end: 20051029
  5. RIFAMPICIN [Suspect]
     Dates: start: 20051018, end: 20051029
  6. RIFAMPICIN [Suspect]
     Dates: start: 20051018, end: 20051029

REACTIONS (5)
  - BLOOD CREATININE INCREASED [None]
  - EOSINOPHILIA [None]
  - LYMPHADENOPATHY [None]
  - PYREXIA [None]
  - RASH MACULO-PAPULAR [None]
